FAERS Safety Report 8436158-7 (Version None)
Quarter: 2012Q2

REPORT INFORMATION
  Report Type: 
  Country: None (occurrence: None)
  Receive Date: 20120614
  Receipt Date: 20120605
  Transmission Date: 20120825
  Serious: Yes (Other)
  Sender: FDA-Public Use
  Company Number: US-PFIZER INC-2012135039

PATIENT
  Sex: Male
  Weight: 80.272 kg

DRUGS (3)
  1. EFFEXOR XR [Suspect]
     Indication: DEPRESSION
     Dosage: 150MG DAILY
     Route: 048
     Dates: start: 20120519
  2. VENLAFAXINE HCL [Suspect]
     Indication: DEPRESSION
     Dosage: UNK
     Dates: start: 20110101
  3. EFFEXOR XR [Suspect]
     Indication: DEPRESSION
     Dosage: 150 MG DAILY
     Route: 048
     Dates: start: 20020101

REACTIONS (3)
  - BIPOLAR DISORDER [None]
  - DRUG INEFFECTIVE [None]
  - DEPRESSION [None]
